FAERS Safety Report 10076791 (Version 3)
Quarter: 2014Q2

REPORT INFORMATION
  Report Type: Spontaneous
  Country: FR (occurrence: FR)
  Receive Date: 20140414
  Receipt Date: 20140606
  Transmission Date: 20141212
  Serious: Yes (Death, Hospitalization, Other)
  Sender: FDA-Public Use
  Company Number: FR-BAYER-2014-053304

PATIENT
  Age: 49 Year
  Sex: Male

DRUGS (3)
  1. NEXAVAR [Suspect]
     Dosage: 200 MG, QD (1 DF QD)
     Dates: start: 20140321, end: 2014
  2. NEXAVAR [Suspect]
     Dosage: 400 MG, QD
     Route: 048
     Dates: start: 20140402, end: 2014
  3. NEXAVAR [Suspect]
     Dosage: 200 MG, BID
     Route: 048
     Dates: start: 2014, end: 2014

REACTIONS (10)
  - Drug-induced liver injury [Fatal]
  - Nausea [Fatal]
  - Vomiting [Fatal]
  - Jaundice [Fatal]
  - Hepatic encephalopathy [None]
  - Epistaxis [Unknown]
  - Haematuria [Unknown]
  - Oedema peripheral [Unknown]
  - Swelling [Unknown]
  - Fatigue [Unknown]
